FAERS Safety Report 5425698-0 (Version None)
Quarter: 2007Q3

REPORT INFORMATION
  Report Type: 
  Country: None (occurrence: None)
  Receive Date: 20070824
  Receipt Date: 20070817
  Transmission Date: 20080115
  Serious: Yes (Hospitalization)
  Sender: FDA-Public Use
  Company Number: FR-PFIZER INC-2007068963

PATIENT
  Sex: Male

DRUGS (1)
  1. TAHOR [Suspect]
     Indication: TYPE IIA HYPERLIPIDAEMIA

REACTIONS (2)
  - CARDIAC ARREST [None]
  - MYOSITIS [None]
